FAERS Safety Report 21573509 (Version 1)
Quarter: 2022Q4

REPORT INFORMATION
  Report Type: Spontaneous
  Country: US (occurrence: US)
  Receive Date: 20221109
  Receipt Date: 20221109
  Transmission Date: 20230113
  Serious: No
  Sender: FDA-Public Use
  Company Number: US-SA-SAC20221107000351

PATIENT
  Sex: Female

DRUGS (30)
  1. KEVZARA [Suspect]
     Active Substance: SARILUMAB
     Indication: Rheumatoid arthritis
     Dosage: 200 MG, QOW
     Route: 058
     Dates: start: 20211013
  2. PREDNISONE [Concomitant]
     Active Substance: PREDNISONE
  3. ALBUTEROL SULFATE [Concomitant]
     Active Substance: ALBUTEROL SULFATE
  4. ANORO ELLIPTA [Concomitant]
     Active Substance: UMECLIDINIUM BROMIDE\VILANTEROL TRIFENATATE
  5. TERBINAFINE HYDROCHLORIDE [Concomitant]
     Active Substance: TERBINAFINE HYDROCHLORIDE
  6. VITAMINS NOS [Concomitant]
     Active Substance: VITAMINS
  7. VITAMIN B COMPLEX WITH C [Concomitant]
     Active Substance: ASCORBIC ACID\CALCIUM PANTOTHENATE\CYANOCOBALAMIN\NIACINAMIDE\PYRIDOXINE HYDROCHLORIDE\RIBOFLAVIN\TH
  8. HERBALS\TURMERIC [Concomitant]
     Active Substance: HERBALS\TURMERIC
  9. APPLE CIDER VINEGAR [Concomitant]
     Active Substance: APPLE CIDER VINEGAR
  10. CRANBERRY + C [Concomitant]
  11. LORATADINE D [Concomitant]
     Active Substance: LORATADINE\PSEUDOEPHEDRINE SULFATE
  12. VITAMIN D NOS [Concomitant]
     Active Substance: VITAMIN D NOS
  13. HYDROXYCHLOROQUINE SULFATE [Concomitant]
     Active Substance: HYDROXYCHLOROQUINE SULFATE
  14. ASPIRIN [Concomitant]
     Active Substance: ASPIRIN
  15. OMEPRAZOLE [Concomitant]
     Active Substance: OMEPRAZOLE
  16. SPIRONOLACTONE AND HYDROCHLOROTHIAZIDE [Concomitant]
     Active Substance: HYDROCHLOROTHIAZIDE\SPIRONOLACTONE
  17. VICODIN HP [Concomitant]
     Active Substance: ACETAMINOPHEN\HYDROCODONE BITARTRATE
  18. GABAPENTIN [Concomitant]
     Active Substance: GABAPENTIN
     Dosage: 59599MG
  19. POTASSIUM [Concomitant]
     Active Substance: POTASSIUM
  20. MONTELUKAST SODIUM [Concomitant]
     Active Substance: MONTELUKAST SODIUM
  21. FUROSEMIDE [Concomitant]
     Active Substance: FUROSEMIDE
  22. BACLOFEN [Concomitant]
     Active Substance: BACLOFEN
  23. AMLODIPINE BESYLATE [Concomitant]
     Active Substance: AMLODIPINE BESYLATE
  24. MELOXICAM [Concomitant]
     Active Substance: MELOXICAM
  25. LEFLUNOMIDE [Concomitant]
     Active Substance: LEFLUNOMIDE
  26. BREO ELLIPTA [Concomitant]
     Active Substance: FLUTICASONE FUROATE\VILANTEROL TRIFENATATE
  27. AZELASTINE HYDROCHLORIDE [Concomitant]
     Active Substance: AZELASTINE HYDROCHLORIDE
  28. FLONASE ALLERGY RELIEF [Concomitant]
     Active Substance: FLUTICASONE PROPIONATE
  29. DICLOFENAC SODIUM [Concomitant]
     Active Substance: DICLOFENAC SODIUM
  30. ACYCLOVIR [Concomitant]
     Active Substance: ACYCLOVIR

REACTIONS (1)
  - Surgery [Unknown]
